FAERS Safety Report 8182818-5 (Version None)
Quarter: 2012Q1

REPORT INFORMATION
  Report Type: 
  Country: None (occurrence: None)
  Receive Date: 20120126
  Receipt Date: 20111028
  Transmission Date: 20120608
  Serious: Yes (Hospitalization)
  Sender: FDA-Public Use
  Company Number: PHEH2011US08203

PATIENT
  Age: 83 Year
  Sex: Male

DRUGS (1)
  1. AFINITOR [Suspect]
     Dosage: 10 MG, QD, ORAL
     Route: 048

REACTIONS (3)
  - HAEMOGLOBIN DECREASED [None]
  - PNEUMONIA STAPHYLOCOCCAL [None]
  - ASTHENIA [None]
